FAERS Safety Report 7463771-6 (Version None)
Quarter: 2011Q2

REPORT INFORMATION
  Report Type: 
  Country: None (occurrence: None)
  Receive Date: 20110428
  Receipt Date: 20110422
  Transmission Date: 20111010
  Serious: Yes (Disabling)
  Sender: FDA-Public Use
  Company Number: TW-1185790

PATIENT
  Sex: Female

DRUGS (1)
  1. BSS [Suspect]
     Indication: CATARACT OPERATION
     Dosage: INTRAOCULAR
     Route: 031

REACTIONS (4)
  - IMPAIRED WORK ABILITY [None]
  - OCULAR HYPERAEMIA [None]
  - VISION BLURRED [None]
  - TOXIC ANTERIOR SEGMENT SYNDROME [None]
